FAERS Safety Report 24650354 (Version 2)
Quarter: 2025Q1

REPORT INFORMATION
  Report Type: Report from Study
  Country: US (occurrence: US)
  Receive Date: 20241122
  Receipt Date: 20250319
  Transmission Date: 20250408
  Serious: Yes (Life-Threatening)
  Sender: TAKEDA
  Company Number: US-TAKEDA-2022TUS023057

PATIENT
  Age: 65 Year
  Sex: Male

DRUGS (2)
  1. GLASSIA [Suspect]
     Active Substance: .ALPHA.1-PROTEINASE INHIBITOR HUMAN
     Indication: Alpha-1 antitrypsin deficiency
  2. GLASSIA [Suspect]
     Active Substance: .ALPHA.1-PROTEINASE INHIBITOR HUMAN

REACTIONS (16)
  - Self-injurious ideation [Unknown]
  - Blood pressure decreased [Unknown]
  - Visual impairment [Unknown]
  - Vertebral column mass [Unknown]
  - Pulmonary mass [Unknown]
  - Oesophageal mass [Unknown]
  - Product leakage [Unknown]
  - Product container seal issue [Unknown]
  - Incorrect dose administered [Unknown]
  - Inappropriate schedule of product administration [Unknown]
  - Lung disorder [Unknown]
  - Asthenia [Unknown]
  - Dyspnoea [Unknown]
  - Dizziness [Unknown]
  - Headache [Unknown]
  - Illness [Unknown]

NARRATIVE: CASE EVENT DATE: 20241115
